FAERS Safety Report 22041681 (Version 1)
Quarter: 2023Q1

REPORT INFORMATION
  Report Type: Spontaneous
  Country: CA (occurrence: CA)
  Receive Date: 20230227
  Receipt Date: 20230227
  Transmission Date: 20230418
  Serious: Yes (Death, Other)
  Sender: FDA-Public Use
  Company Number: None

PATIENT
  Age: 66 Year
  Sex: Female

DRUGS (2)
  1. MORPHINE SULFATE [Suspect]
     Active Substance: MORPHINE SULFATE
     Indication: Product used for unknown indication
     Dosage: UNK
     Route: 065
  2. OMALIZUMAB [Suspect]
     Active Substance: OMALIZUMAB
     Indication: Chronic spontaneous urticaria
     Dosage: 300 MILLIGRAM
     Route: 058

REACTIONS (15)
  - Death [Fatal]
  - Angina pectoris [Fatal]
  - Asthenia [Fatal]
  - Diabetic retinopathy [Fatal]
  - Dizziness [Fatal]
  - Drug hypersensitivity [Fatal]
  - Dyspnoea [Fatal]
  - Fatigue [Fatal]
  - Hyperhidrosis [Fatal]
  - Hypertension [Fatal]
  - Loss of consciousness [Fatal]
  - Malaise [Fatal]
  - Nausea [Fatal]
  - Product dose omission issue [Fatal]
  - Syncope [Fatal]
